FAERS Safety Report 7142532-1 (Version None)
Quarter: 2010Q4

REPORT INFORMATION
  Report Type: 
  Country: None (occurrence: None)
  Receive Date: 20101207
  Receipt Date: 20100601
  Transmission Date: 20110411
  Serious: Yes (Other)
  Sender: FDA-Public Use
  Company Number: US-ELI_LILLY_AND_COMPANY-US201006001015

PATIENT
  Age: 78 Year
  Sex: Female

DRUGS (3)
  1. FORTEO [Suspect]
     Indication: OSTEOPOROSIS
     Dosage: 20 UG, DAILY (1/D)
  2. MAXZIDE [Concomitant]
  3. LOVASTATIN [Concomitant]

REACTIONS (4)
  - EPITHELIOID SARCOMA [None]
  - FRACTURE [None]
  - HYPERPLASIA [None]
  - LIPOMA [None]
